FAERS Safety Report 18731418 (Version 1)
Quarter: 2021Q1

REPORT INFORMATION
  Report Type: Spontaneous
  Country: CA (occurrence: CA)
  Receive Date: 20210112
  Receipt Date: 20210112
  Transmission Date: 20210419
  Serious: Yes (Death, Hospitalization)
  Sender: FDA-Public Use
  Company Number: CA-TEVA-2021-CA-1866473

PATIENT
  Age: 77 Year
  Sex: Female
  Weight: 35 kg

DRUGS (13)
  1. CHOLECALCIFEROL [Concomitant]
     Active Substance: CHOLECALCIFEROL
  2. FERROUS GLUCONATE [Concomitant]
     Active Substance: FERROUS GLUCONATE
  3. SILDENAFIL CITRATE. [Suspect]
     Active Substance: SILDENAFIL CITRATE
     Indication: PULMONARY ARTERIAL HYPERTENSION
     Route: 048
  4. HYDROMORPHONE [Concomitant]
     Active Substance: HYDROMORPHONE
  5. APIXABAN [Concomitant]
     Active Substance: APIXABAN
  6. FOLIC ACID. [Concomitant]
     Active Substance: FOLIC ACID
  7. MACITENTAN [Concomitant]
     Active Substance: MACITENTAN
  8. AMLODIPINE [Concomitant]
     Active Substance: AMLODIPINE BESYLATE
  9. SPIRONOLACTONE. [Concomitant]
     Active Substance: SPIRONOLACTONE
  10. CYANOCOBALAMIN. [Concomitant]
     Active Substance: CYANOCOBALAMIN
  11. FUROSEMIDE. [Concomitant]
     Active Substance: FUROSEMIDE
  12. AMITRIPTYLINE [Concomitant]
     Active Substance: AMITRIPTYLINE
  13. OPSUMIT [Concomitant]
     Active Substance: MACITENTAN

REACTIONS (5)
  - Peripheral swelling [Fatal]
  - Lung disorder [Fatal]
  - Cardiac disorder [Fatal]
  - Death [Fatal]
  - Malaise [Fatal]
